FAERS Safety Report 4503224-8 (Version None)
Quarter: 2004Q4

REPORT INFORMATION
  Report Type: 
  Country: None (occurrence: None)
  Receive Date: 20041112
  Receipt Date: 20041026
  Transmission Date: 20050328
  Serious: Yes (Other)
  Sender: FDA-Public Use
  Company Number: DSA_70506_2004

PATIENT
  Age: 29 Year
  Sex: Male

DRUGS (3)
  1. AZATHIOPRINE [Suspect]
     Indication: CROHN'S DISEASE
     Dosage: 2 MG/KG QDAY
     Dates: start: 20020701
  2. INFLIXIMAB [Suspect]
     Indication: CROHN'S DISEASE
     Dosage: 5 MG/KG IV
     Route: 042
     Dates: start: 20020801
  3. PREDNISOLONE [Suspect]
     Indication: CROHN'S DISEASE
     Dosage: 60 MG   QDAY
     Dates: start: 20020401

REACTIONS (6)
  - ASTHENIA [None]
  - HYPOXIA [None]
  - IMMUNOSUPPRESSION [None]
  - LUNG INFILTRATION [None]
  - PNEUMOCYSTIS CARINII PNEUMONIA [None]
  - WHITE BLOOD CELL COUNT DECREASED [None]
